FAERS Safety Report 13093430 (Version 2)
Quarter: 2017Q1

REPORT INFORMATION
  Report Type: Spontaneous
  Country: US (occurrence: US)
  Receive Date: 20170106
  Receipt Date: 20170210
  Transmission Date: 20170428
  Serious: No
  Sender: FDA-Public Use
  Company Number: US-GLAXOSMITHKLINE-US2017GSK000192

PATIENT
  Sex: Female

DRUGS (1)
  1. IMITREX [Suspect]
     Active Substance: SUMATRIPTAN SUCCINATE

REACTIONS (5)
  - Chest discomfort [Unknown]
  - Headache [Unknown]
  - Drug hypersensitivity [Unknown]
  - Neurological symptom [Unknown]
  - Drug intolerance [Unknown]
